FAERS Safety Report 14057398 (Version 1)
Quarter: 2017Q4

REPORT INFORMATION
  Report Type: Spontaneous
  Country: CN (occurrence: CN)
  Receive Date: 20171006
  Receipt Date: 20171006
  Transmission Date: 20180321
  Serious: Yes (Hospitalization)
  Sender: FDA-Public Use
  Company Number: CN-BAYER-2017-187012

PATIENT
  Age: 52 Year
  Sex: Male
  Weight: 75 kg

DRUGS (11)
  1. BAYASPIRIN 100 MG [Concomitant]
     Active Substance: ASPIRIN
     Indication: PLATELET AGGREGATION INCREASED
     Dosage: UNK
     Dates: start: 20170626
  2. PLAVIX [Concomitant]
     Active Substance: CLOPIDOGREL BISULFATE
     Indication: PLATELET AGGREGATION INCREASED
     Dosage: UNK
     Dates: start: 20170626
  3. LIPITOR [Concomitant]
     Active Substance: ATORVASTATIN CALCIUM
     Indication: LIPIDS INCREASED
     Dosage: UNK
     Dates: start: 20170626
  4. DIAMICRON [Concomitant]
     Active Substance: GLICLAZIDE
     Indication: BLOOD GLUCOSE INCREASED
     Dosage: UNK
     Dates: start: 20170626
  5. TRIMETAZIDINE HYDROCHLORIDE [Suspect]
     Active Substance: TRIMETAZIDINE DIHYDROCHLORIDE
     Indication: CORONARY ARTERY DISEASE
     Dosage: 20 MG, TID
     Route: 048
     Dates: start: 20170623, end: 20170627
  6. IOPROMIDE [Suspect]
     Active Substance: IOPROMIDE
     Indication: ARTERIOGRAM CORONARY
  7. BETALOC [Concomitant]
     Active Substance: METOPROLOL TARTRATE
     Indication: BLOOD PRESSURE INCREASED
     Dosage: UNK
     Dates: start: 20170626
  8. NEXIUM [Concomitant]
     Active Substance: ESOMEPRAZOLE MAGNESIUM
     Indication: PROPHYLAXIS
     Dosage: UNK
     Dates: start: 20170626
  9. IOPROMIDE [Suspect]
     Active Substance: IOPROMIDE
     Indication: RADIOISOTOPE SCAN
     Dosage: 20 ML, ONCE
     Route: 042
     Dates: start: 20170623, end: 20170627
  10. NORVASC [Concomitant]
     Active Substance: AMLODIPINE BESYLATE
     Indication: BLOOD PRESSURE INCREASED
     Dosage: UNK
     Dates: start: 20170626
  11. ELANTAN [Concomitant]
     Active Substance: ISOSORBIDE MONONITRATE
     Indication: GENERAL SYMPTOM
     Dosage: UNK
     Dates: start: 20170626

REACTIONS (1)
  - Dermatitis [Recovering/Resolving]

NARRATIVE: CASE EVENT DATE: 20170627
